FAERS Safety Report 9863466 (Version 3)
Quarter: 2014Q1

REPORT INFORMATION
  Report Type: Report from Study
  Country: DE (occurrence: DE)
  Receive Date: 20140203
  Receipt Date: 20140304
  Transmission Date: 20141002
  Serious: Yes (Hospitalization)
  Sender: FDA-Public Use
  Company Number: PHHY2014DE012545

PATIENT
  Sex: Male

DRUGS (4)
  1. AMN107 [Suspect]
     Indication: CHRONIC MYELOID LEUKAEMIA
     Dosage: 600 MG, DAILY
     Route: 048
     Dates: start: 20120907
  2. ZYLORIC [Concomitant]
     Indication: HYPERURICAEMIA
     Dosage: ONCE DAILY
     Route: 048
     Dates: start: 20120804
  3. MCP//METOCLOPRAMIDE HYDROCHLORIDE [Concomitant]
     Dates: start: 20130805
  4. METAMIZOLE [Concomitant]
     Dates: start: 20130805

REACTIONS (1)
  - Peritonsillitis [Recovered/Resolved]
